FAERS Safety Report 7847786 (Version 3)
Quarter: 2014Q1

REPORT INFORMATION
  Report Type: Report from Study
  Country: DE (occurrence: DE)
  Receive Date: 20110309
  Receipt Date: 20140227
  Transmission Date: 20141002
  Serious: Yes (Other)
  Sender: FDA-Public Use
  Company Number: DE-ROCHE-763032

PATIENT
  Age: 54 Year
  Sex: Female
  Weight: 63 kg

DRUGS (26)
  1. MYCOPHENOLATE MOFETIL [Suspect]
     Indication: PROPHYLAXIS AGAINST TRANSPLANT REJECTION
     Route: 048
     Dates: start: 20100623, end: 20100930
  2. MYCOPHENOLATE MOFETIL [Suspect]
     Route: 048
     Dates: start: 20101001, end: 20110215
  3. MYCOPHENOLATE MOFETIL [Suspect]
     Route: 048
     Dates: start: 20110216, end: 20110302
  4. MYCOPHENOLATE MOFETIL [Suspect]
     Route: 048
     Dates: start: 20110303
  5. TACROLIMUS [Suspect]
     Indication: PROPHYLAXIS AGAINST TRANSPLANT REJECTION
     Route: 048
     Dates: start: 20100623, end: 20100626
  6. TACROLIMUS [Suspect]
     Route: 048
     Dates: start: 20100627, end: 20100630
  7. TACROLIMUS [Suspect]
     Route: 048
     Dates: start: 20100701, end: 20100702
  8. TACROLIMUS [Suspect]
     Route: 048
     Dates: start: 20100703, end: 20100705
  9. TACROLIMUS [Suspect]
     Route: 048
     Dates: start: 20100706, end: 20100722
  10. TACROLIMUS [Suspect]
     Route: 048
     Dates: start: 20100723, end: 20100805
  11. TACROLIMUS [Suspect]
     Route: 048
     Dates: start: 20100806, end: 20100816
  12. TACROLIMUS [Suspect]
     Route: 048
     Dates: start: 20100817, end: 20100914
  13. TACROLIMUS [Suspect]
     Route: 048
     Dates: start: 20100915, end: 20110215
  14. TACROLIMUS [Suspect]
     Route: 048
     Dates: start: 20110216, end: 20110223
  15. TACROLIMUS [Suspect]
     Route: 048
  16. PREDNISOLONE [Suspect]
     Indication: PROPHYLAXIS AGAINST TRANSPLANT REJECTION
     Route: 048
     Dates: start: 20100623, end: 20100623
  17. PREDNISOLONE [Suspect]
     Route: 048
     Dates: start: 20100624, end: 20100624
  18. PREDNISOLONE [Suspect]
     Route: 048
     Dates: start: 20100625, end: 20100625
  19. PREDNISOLONE [Suspect]
     Route: 048
     Dates: start: 20100626, end: 20100626
  20. PREDNISOLONE [Suspect]
     Route: 048
     Dates: start: 20100627, end: 20100630
  21. PREDNISOLONE [Suspect]
     Route: 048
     Dates: start: 20110207, end: 20110214
  22. PREDNISOLONE [Suspect]
     Route: 048
     Dates: start: 20110215, end: 20110221
  23. PREDNISOLONE [Suspect]
     Route: 048
     Dates: start: 20110222, end: 20110301
  24. PREDNISOLONE [Suspect]
     Route: 048
     Dates: start: 20110302, end: 20110315
  25. PREDNISOLONE [Suspect]
     Route: 048
  26. THYMOGLOBULIN [Suspect]
     Indication: PROPHYLAXIS AGAINST TRANSPLANT REJECTION
     Dosage: FORM: LIQUID
     Route: 042
     Dates: start: 20100623, end: 20100625

REACTIONS (2)
  - Transplant rejection [Recovered/Resolved with Sequelae]
  - Blood creatinine increased [Recovered/Resolved with Sequelae]
